FAERS Safety Report 6773140-X (Version None)
Quarter: 2010Q2

REPORT INFORMATION
  Report Type: 
  Country: None (occurrence: None)
  Receive Date: 20100616
  Receipt Date: 20090928
  Transmission Date: 20101027
  Serious: No
  Sender: FDA-Public Use
  Company Number: US-TYCO HEALTHCARE/MALLINCKRODT-T200901807

PATIENT
  Sex: Male
  Weight: 89.4 kg

DRUGS (7)
  1. ULTRATAG [Suspect]
     Indication: RADIOISOTOPE SCAN
     Dosage: UNK
     Route: 042
     Dates: start: 20090925, end: 20090925
  2. ULTRA-TECHNEKOW [Concomitant]
     Indication: RADIOISOTOPE SCAN
     Dosage: 26.1 MCI, SINGLE
     Route: 042
     Dates: start: 20090925, end: 20090925
  3. ASCORBIC ACID [Concomitant]
  4. FAMOTIDINE [Concomitant]
  5. PROTONIX [Concomitant]
  6. POLYETHYLENE GLYCOL [Concomitant]
  7. KENALOG [Concomitant]

REACTIONS (1)
  - DRUG INEFFECTIVE [None]
